FAERS Safety Report 17270368 (Version 3)
Quarter: 2022Q2

REPORT INFORMATION
  Report Type: Report from Study
  Country: CA (occurrence: CA)
  Receive Date: 20200114
  Receipt Date: 20220519
  Transmission Date: 20220721
  Serious: Yes (Other)
  Sender: FDA-Public Use
  Company Number: None

PATIENT
  Sex: Male

DRUGS (10)
  1. COSENTYX [Suspect]
     Active Substance: SECUKINUMAB
     Indication: Psoriatic arthropathy
     Dosage: 300 MG, QMO
     Route: 058
     Dates: start: 20190629
  2. COSENTYX [Suspect]
     Active Substance: SECUKINUMAB
     Indication: Ankylosing spondylitis
     Dosage: 300 MG, Q3W X6 WEEK SUPPLY
     Route: 058
  3. COSENTYX [Suspect]
     Active Substance: SECUKINUMAB
     Dosage: 300 MG, Q3W
     Route: 058
  4. PIROXICAM [Concomitant]
     Active Substance: PIROXICAM
     Indication: Product used for unknown indication
     Dosage: 20 MG, QD
     Route: 048
     Dates: start: 1998
  5. SPIRONOLACTONE [Concomitant]
     Active Substance: SPIRONOLACTONE
     Indication: Hepatic cirrhosis
     Dosage: 25 MG, QD
     Route: 048
     Dates: start: 2016
  6. OMEPRAZOLE [Concomitant]
     Active Substance: OMEPRAZOLE
     Indication: Cardiac disorder
     Dosage: 1 DOSAGE FORM, QD
     Route: 048
     Dates: start: 2018
  7. ATORVASTATIN [Concomitant]
     Active Substance: ATORVASTATIN
     Indication: Blood cholesterol
     Dosage: 40 MG, QD
     Route: 048
     Dates: start: 2007
  8. LABETALOL HYDROCHLORIDE [Concomitant]
     Active Substance: LABETALOL HYDROCHLORIDE
     Indication: Product used for unknown indication
     Dosage: 2 DF, QD
     Route: 048
     Dates: start: 2018
  9. PERINDOPRIL ERBUMINE [Concomitant]
     Active Substance: PERINDOPRIL ERBUMINE
     Indication: Blood pressure abnormal
     Dosage: 8 MG, QID
     Route: 048
     Dates: start: 2018
  10. ASPIRIN [Concomitant]
     Active Substance: ASPIRIN
     Indication: Product used for unknown indication
     Dosage: 81 MG, QID
     Route: 048
     Dates: start: 2004

REACTIONS (14)
  - Psoriatic arthropathy [Unknown]
  - Muscle spasms [Not Recovered/Not Resolved]
  - Blood pressure decreased [Unknown]
  - Blood potassium decreased [Unknown]
  - Abdominal rigidity [Unknown]
  - Cough [Unknown]
  - Gait disturbance [Unknown]
  - General physical health deterioration [Unknown]
  - Pain [Unknown]
  - Fatigue [Unknown]
  - Joint stiffness [Unknown]
  - Arthralgia [Unknown]
  - Off label use [Unknown]
  - Therapeutic product effect incomplete [Unknown]
